FAERS Safety Report 8699088 (Version 3)
Quarter: 2012Q4

REPORT INFORMATION
  Report Type: 
  Country: AR (occurrence: AR)
  Receive Date: 20120802
  Receipt Date: 20121127
  Transmission Date: 20130627
  Serious: Yes (Hospitalization, Other)
  Sender: FDA-Public Use
  Company Number: AR-ALLERGAN-1210310US

PATIENT
  Age: 54 Year
  Sex: Female

DRUGS (2)
  1. BOTOX� [Suspect]
     Indication: WRINKLES
     Dosage: 32 UNITS, single
     Route: 030
     Dates: start: 20120618, end: 20120618
  2. BOTOX� [Suspect]
     Dosage: 50 UNITS, single

REACTIONS (15)
  - Quadriplegia [Not Recovered/Not Resolved]
  - Guillain-Barre syndrome [Not Recovered/Not Resolved]
  - VIIth nerve paralysis [Not Recovered/Not Resolved]
  - Hypersensitivity [Unknown]
  - Drug ineffective [Unknown]
  - Dyspnoea [Unknown]
  - Palpitations [Unknown]
  - Hyperhidrosis [Unknown]
  - Agitation [Unknown]
  - Tremor [Recovered/Resolved]
  - Nervous system disorder [Unknown]
  - Lethargy [Unknown]
  - Convulsion [Recovered/Resolved]
  - Headache [Unknown]
  - Psychosomatic disease [Unknown]
